FAERS Safety Report 9064051 (Version 1)
Quarter: 2013Q1

REPORT INFORMATION
  Report Type: Report from Study
  Country: US (occurrence: US)
  Receive Date: 20130131
  Receipt Date: 20130131
  Transmission Date: 20140127
  Serious: No
  Sender: FDA-Public Use
  Company Number: US-ABBOTT-12P-163-1017676-00

PATIENT
  Age: 50 Year
  Sex: Female

DRUGS (16)
  1. HUMIRA [Suspect]
     Indication: PSORIASIS
     Route: 058
     Dates: start: 20121119, end: 20121119
  2. HUMIRA [Suspect]
     Dates: start: 20121127
  3. MELOXICAM [Concomitant]
     Indication: PAIN
     Dosage: DAILY
  4. OMEPRAZOLE [Concomitant]
     Indication: PROPHYLAXIS
     Dosage: DAILY
  5. LOSARTIN [Concomitant]
     Indication: BLOOD PRESSURE INCREASED
     Dosage: DAILY
     Route: 048
  6. CYMBALTA [Concomitant]
     Indication: DEPRESSION
     Dosage: DAILY
  7. CYMBALTA [Concomitant]
     Indication: FIBROMYALGIA
  8. LEVOTHYROXINE [Concomitant]
     Indication: HYPOTHYROIDISM
     Dosage: DAILY
  9. ESTRADIOL [Concomitant]
     Indication: HORMONE REPLACEMENT THERAPY
     Dosage: TRANSDERMAL GEL
  10. VITAMIN D [Concomitant]
     Indication: VITAMIN D DECREASED
     Dosage: DAILY
  11. FLONASE [Concomitant]
     Indication: HYPERSENSITIVITY
     Dosage: 2 SPRAYS DAILY
  12. ALLEGRA [Concomitant]
     Indication: HYPERSENSITIVITY
     Dosage: DAILY
  13. CARISOPRODOL [Concomitant]
     Indication: INSOMNIA
     Dosage: DAILY
  14. VECTICAL [Concomitant]
     Indication: PSORIASIS
     Dosage: 3MCG/G
     Route: 061
  15. XANAX [Concomitant]
     Indication: ANXIETY
     Dosage: AS NEEDED
     Route: 048
  16. ULTRAM [Concomitant]
     Indication: PAIN
     Dosage: AS NEEDED

REACTIONS (3)
  - Myalgia [Not Recovered/Not Resolved]
  - Muscle spasms [Not Recovered/Not Resolved]
  - Pain in extremity [Unknown]
